FAERS Safety Report 18324634 (Version 1)
Quarter: 2020Q3

REPORT INFORMATION
  Report Type: Spontaneous
  Country: DE (occurrence: DE)
  Receive Date: 20200929
  Receipt Date: 20200929
  Transmission Date: 20201103
  Serious: Yes (Death, Other)
  Sender: FDA-Public Use
  Company Number: DE-AMGEN-DEUSP2020154476

PATIENT
  Age: 1 Year
  Sex: Male

DRUGS (8)
  1. THIOTEPA. [Concomitant]
     Active Substance: THIOTEPA
  2. MELPHALAN. [Concomitant]
     Active Substance: MELPHALAN
  3. GRAFALON [Concomitant]
     Active Substance: LAPINE T-LYMPHOCYTE IMMUNE GLOBULIN
  4. PEMBROLIZUMAB. [Concomitant]
     Active Substance: PEMBROLIZUMAB
     Indication: ACUTE LYMPHOCYTIC LEUKAEMIA
  5. CLOFARABINE. [Concomitant]
     Active Substance: CLOFARABINE
  6. BLINATUMOMAB [Suspect]
     Active Substance: BLINATUMOMAB
     Indication: B PRECURSOR TYPE ACUTE LEUKAEMIA
     Dosage: UNK
     Route: 065
  7. INOTUZUMAB OZOGAMICIN [Concomitant]
     Active Substance: INOTUZUMAB OZOGAMICIN
     Indication: ACUTE LYMPHOCYTIC LEUKAEMIA
  8. FLUDARABINE [Concomitant]
     Active Substance: FLUDARABINE PHOSPHATE
     Indication: ACUTE LYMPHOCYTIC LEUKAEMIA RECURRENT

REACTIONS (7)
  - Leukaemic infiltration extramedullary [Fatal]
  - Drug ineffective [Unknown]
  - Leukocytosis [Unknown]
  - Cytokine release syndrome [Unknown]
  - B-cell aplasia [Unknown]
  - Bacterial sepsis [Unknown]
  - Acute lymphocytic leukaemia recurrent [Unknown]
